FAERS Safety Report 7600728-6 (Version None)
Quarter: 2011Q3

REPORT INFORMATION
  Report Type: 
  Country: None (occurrence: None)
  Receive Date: 20110706
  Receipt Date: 20110706
  Transmission Date: 20111222
  Serious: Yes (Disabling)
  Sender: FDA-Public Use
  Company Number: None

PATIENT
  Sex: Male
  Weight: 63.5036 kg

DRUGS (1)
  1. CIPRODEX [Suspect]
     Indication: EAR INFECTION
     Dosage: 4 DROPS TWICE DAILY
     Dates: start: 20110516

REACTIONS (1)
  - HYPERACUSIS [None]
